FAERS Safety Report 23080679 (Version 5)
Quarter: 2025Q2

REPORT INFORMATION
  Report Type: Spontaneous
  Country: JP (occurrence: JP)
  Receive Date: 20231018
  Receipt Date: 20250605
  Transmission Date: 20250717
  Serious: Yes (Other)
  Sender: BRISTOL-MYERS SQUIBB COMPANY
  Company Number: JP-ONO-2023JP025423

PATIENT
  Age: 70 Year
  Sex: Male

DRUGS (4)
  1. OPDIVO [Suspect]
     Active Substance: NIVOLUMAB
     Indication: Metastatic renal cell carcinoma
     Route: 041
  2. YERVOY [Suspect]
     Active Substance: IPILIMUMAB
     Indication: Metastatic renal cell carcinoma
  3. LEVETIRACETAM [Concomitant]
     Active Substance: LEVETIRACETAM
     Indication: Product used for unknown indication
  4. VONOPRAZAN FUMARATE [Concomitant]
     Active Substance: VONOPRAZAN FUMARATE
     Indication: Product used for unknown indication

REACTIONS (1)
  - Dermatitis psoriasiform [Recovering/Resolving]
